FAERS Safety Report 19587805 (Version 1)
Quarter: 2021Q3

REPORT INFORMATION
  Report Type: Spontaneous
  Country: US (occurrence: US)
  Receive Date: 20210720
  Receipt Date: 20210720
  Transmission Date: 20211014
  Serious: Yes (Death)
  Sender: FDA-Public Use
  Company Number: None

PATIENT
  Age: 53 Year
  Sex: Female

DRUGS (14)
  1. AMOX/K CLAV [Concomitant]
     Active Substance: AMOXICILLIN\CLAVULANATE POTASSIUM
  2. DOXEPIN HCL [Concomitant]
     Active Substance: DOXEPIN HYDROCHLORIDE
  3. GABAPENTIN. [Concomitant]
     Active Substance: GABAPENTIN
  4. METRONIDAZOL [Concomitant]
     Active Substance: METRONIDAZOLE
  5. POT CL MICRO ER [Concomitant]
  6. HYDROCO/APAP [Concomitant]
     Active Substance: ACETAMINOPHEN\HYDROCODONE
  7. DEXAMETHASON [Concomitant]
     Active Substance: DEXAMETHASONE
  8. ELIQUIS [Concomitant]
     Active Substance: APIXABAN
  9. MORPHINE SUL ER [Concomitant]
  10. PHOS?NAK CONCENTR [Concomitant]
  11. FLOVENT DISK [Concomitant]
  12. NYSTATIN. [Concomitant]
     Active Substance: NYSTATIN
  13. ZARXIO [Suspect]
     Active Substance: FILGRASTIM-SNDZ
     Indication: GASTROINTESTINAL DISORDER
     Dosage: 1  SYR  :QD X 5D SQ PER ? 14D CYCLE?
     Route: 058
     Dates: start: 20200605, end: 20210718
  14. LIDOCAINE. [Concomitant]
     Active Substance: LIDOCAINE

REACTIONS (1)
  - Death [None]

NARRATIVE: CASE EVENT DATE: 20210718
